FAERS Safety Report 9722035 (Version 1)
Quarter: 2013Q4

REPORT INFORMATION
  Report Type: Spontaneous
  Country: US (occurrence: US)
  Receive Date: 20131202
  Receipt Date: 20131202
  Transmission Date: 20140711
  Serious: Yes (Other)
  Sender: FDA-Public Use
  Company Number: US-JNJFOC-20131114431

PATIENT
  Age: 64 Year
  Sex: Male
  Weight: 94.8 kg

DRUGS (5)
  1. SUDAFED 24 HOUR [Suspect]
     Route: 048
  2. SUDAFED 24 HOUR [Suspect]
     Indication: SINUS CONGESTION
     Route: 048
  3. LISINOPRIL [Concomitant]
     Indication: HYPERTENSION
     Route: 065
  4. TERAZOSIN [Concomitant]
     Indication: PROSTATOMEGALY
     Route: 065
  5. FLOVENT HFA [Concomitant]
     Indication: BRONCHITIS
     Dosage: DOSAGE: 110G/2 PUFFS A DAY
     Route: 065

REACTIONS (4)
  - Peripheral embolism [Recovering/Resolving]
  - Fall [Unknown]
  - Pain in extremity [Recovering/Resolving]
  - Inappropriate schedule of drug administration [Unknown]
